FAERS Safety Report 5510941-X (Version None)
Quarter: 2007Q4

REPORT INFORMATION
  Report Type: 
  Country: None (occurrence: None)
  Receive Date: 20071106
  Receipt Date: 20071106
  Transmission Date: 20080405
  Serious: Yes (Hospitalization)
  Sender: FDA-Public Use
  Company Number: None

PATIENT
  Age: 69 Year
  Sex: Male
  Weight: 80.2 kg

DRUGS (1)
  1. DIGIBIND [Suspect]
     Indication: CARDIOACTIVE DRUG LEVEL INCREASED
     Dosage: 224MG ONCE IV
     Route: 042
     Dates: start: 20071016, end: 20071016

REACTIONS (9)
  - ASTHENIA [None]
  - ATRIAL FIBRILLATION [None]
  - CARDIOACTIVE DRUG LEVEL INCREASED [None]
  - DRUG PRESCRIBING ERROR [None]
  - INCORRECT DOSE ADMINISTERED [None]
  - MEDICATION ERROR [None]
  - NAUSEA [None]
  - PULMONARY CONGESTION [None]
  - VOMITING [None]
